FAERS Safety Report 12705268 (Version 8)
Quarter: 2017Q4

REPORT INFORMATION
  Report Type: Spontaneous
  Country: JP (occurrence: JP)
  Receive Date: 20160831
  Receipt Date: 20171002
  Transmission Date: 20180320
  Serious: Yes (Other)
  Sender: FDA-Public Use
  Company Number: JP-MYLANLABS-2016M1036537

PATIENT
  Age: 53 Year
  Sex: Female

DRUGS (4)
  1. CLOZAPINE. [Suspect]
     Active Substance: CLOZAPINE
     Indication: SCHIZOPHRENIA
     Dosage: 150 MG, QD
     Route: 048
     Dates: start: 20160404, end: 20160425
  2. LITHIUM. [Suspect]
     Active Substance: LITHIUM
     Indication: SCHIZOPHRENIA
     Dosage: UNK
     Dates: start: 201604, end: 2017
  3. ZYPREXA [Concomitant]
     Active Substance: OLANZAPINE
     Dosage: 15 MG, UNK
     Route: 065
  4. ZYPREXA [Concomitant]
     Active Substance: OLANZAPINE
     Indication: SCHIZOPHRENIA
     Dosage: 8 MG, UNK

REACTIONS (12)
  - Renal failure [Recovered/Resolved]
  - Pericardial effusion [Unknown]
  - Pyrexia [Recovered/Resolved]
  - Toxicity to various agents [Unknown]
  - Renal impairment [Recovered/Resolved]
  - Malaise [Unknown]
  - Electrolyte imbalance [Unknown]
  - Ejection fraction decreased [Unknown]
  - Myocarditis [Recovered/Resolved]
  - Pyelonephritis [Recovered/Resolved]
  - Cardiac failure [Recovered/Resolved]
  - Pulmonary oedema [Recovered/Resolved]

NARRATIVE: CASE EVENT DATE: 2016
